FAERS Safety Report 13517917 (Version 1)
Quarter: 2017Q2

REPORT INFORMATION
  Report Type: Spontaneous
  Country: DE (occurrence: DE)
  Receive Date: 20170505
  Receipt Date: 20170505
  Transmission Date: 20170830
  Serious: Yes (Other)
  Sender: FDA-Public Use
  Company Number: DE-GLAXOSMITHKLINE-DE2017064141

PATIENT
  Sex: Female

DRUGS (1)
  1. BUPROPION. [Suspect]
     Active Substance: BUPROPION
     Route: 048

REACTIONS (6)
  - Toxicity to various agents [Recovering/Resolving]
  - Generalised tonic-clonic seizure [Recovering/Resolving]
  - Suicide attempt [Unknown]
  - Myoclonic epilepsy [Recovering/Resolving]
  - Coma [Recovering/Resolving]
  - Encephalopathy [Not Recovered/Not Resolved]
